FAERS Safety Report 21447210 (Version 3)
Quarter: 2022Q4

REPORT INFORMATION
  Report Type: Spontaneous
  Country: US (occurrence: US)
  Receive Date: 20221012
  Receipt Date: 20221108
  Transmission Date: 20230113
  Serious: Yes (Other)
  Sender: FDA-Public Use
  Company Number: US-ORGANON-O2210USA000060

PATIENT
  Sex: Female

DRUGS (3)
  1. NEXPLANON [Suspect]
     Active Substance: ETONOGESTREL
     Dosage: 1 ROD IN THE LEFT UPPER ARM
     Route: 059
     Dates: start: 20220919, end: 202209
  2. NEXPLANON [Suspect]
     Active Substance: ETONOGESTREL
     Dosage: 1 ROD IN DOMINANT ARM
     Route: 059
     Dates: start: 2022
  3. NEXPLANON [Concomitant]
     Active Substance: ETONOGESTREL
     Dosage: 1 IMPLANT
     Route: 059
     Dates: start: 201909, end: 20220919

REACTIONS (4)
  - Device expulsion [Recovered/Resolved]
  - Infection [Recovered/Resolved]
  - Complication associated with device [Recovered/Resolved]
  - Device placement issue [Unknown]

NARRATIVE: CASE EVENT DATE: 20220101
